FAERS Safety Report 9060236 (Version 2)
Quarter: 2013Q1

REPORT INFORMATION
  Report Type: Report from Study
  Country: AU (occurrence: AU)
  Receive Date: 20130212
  Receipt Date: 20130219
  Transmission Date: 20140127
  Serious: Yes (Life-Threatening, Hospitalization)
  Sender: FDA-Public Use
  Company Number: AU-AMGEN-AUSCT2013006684

PATIENT
  Age: 52 Year
  Sex: Female
  Weight: 80 kg

DRUGS (9)
  1. DENOSUMAB [Suspect]
     Indication: BREAST CANCER
     Dosage: ADVERSE EVENT
     Route: 058
     Dates: start: 20120119
  2. EPILIM [Concomitant]
     Dosage: 1 G, UNK
     Route: 048
     Dates: start: 20080615
  3. COLOXYL WITH SENNA [Concomitant]
     Dosage: 50 MG, UNK
     Route: 048
     Dates: start: 20120107
  4. EFFEXOR [Concomitant]
     Dosage: 300 MG, UNK
     Route: 048
     Dates: start: 20080615
  5. PANADOL [Concomitant]
     Dosage: 1 G, UNK
     Route: 048
     Dates: start: 20111128
  6. CALCIUM [Concomitant]
     Dosage: 500 MG, UNK
     Route: 048
     Dates: start: 20120120
  7. VIT D [Concomitant]
     Dosage: 400 IU, UNK
     Route: 048
     Dates: start: 20120120
  8. OSTELIN [Concomitant]
     Dosage: 25 MUG, UNK
     Route: 048
     Dates: start: 20120226
  9. ATENOLOL [Concomitant]
     Dosage: 25 MG, UNK
     Route: 048
     Dates: start: 20121215

REACTIONS (2)
  - Thrombocytopenia [Not Recovered/Not Resolved]
  - Febrile neutropenia [Not Recovered/Not Resolved]
